FAERS Safety Report 8482673-X (Version None)
Quarter: 2012Q3

REPORT INFORMATION
  Report Type: 
  Country: None (occurrence: None)
  Receive Date: 20120702
  Receipt Date: 20120628
  Transmission Date: 20120928
  Serious: Yes (Hospitalization, Disabling, Other)
  Sender: FDA-Public Use
  Company Number: US-MERCK-1201USA00775

PATIENT
  Age: 48 Year
  Sex: Female
  Weight: 54 kg

DRUGS (6)
  1. FOSAMAX [Suspect]
     Indication: OSTEOPOROSIS
     Route: 048
     Dates: start: 19990501, end: 20030101
  2. ACTONEL [Suspect]
     Route: 048
     Dates: start: 20030101, end: 20080101
  3. PREMPRO [Concomitant]
     Indication: OSTEOPOROSIS
     Route: 048
     Dates: start: 19990101
  4. BONIVA [Suspect]
     Indication: OSTEOPOROSIS
     Route: 065
     Dates: start: 19990101, end: 20080101
  5. PENTASA [Concomitant]
     Route: 065
  6. PREMPRO [Concomitant]
     Indication: OSTEOPENIA
     Route: 048
     Dates: start: 19990101

REACTIONS (46)
  - FEMUR FRACTURE [None]
  - FIBROCYSTIC BREAST DISEASE [None]
  - BREAST CALCIFICATIONS [None]
  - GASTROOESOPHAGEAL REFLUX DISEASE [None]
  - POLYP [None]
  - BACK PAIN [None]
  - CONTUSION [None]
  - APPENDICITIS PERFORATED [None]
  - GASTRITIS [None]
  - CROHN'S DISEASE [None]
  - BLOOD POTASSIUM DECREASED [None]
  - DENTAL CARIES [None]
  - LIMB ASYMMETRY [None]
  - SINUSITIS [None]
  - ACQUIRED OESOPHAGEAL WEB [None]
  - DEHYDRATION [None]
  - SMALL INTESTINAL OBSTRUCTION [None]
  - BREAST DISORDER [None]
  - SEBORRHOEIC KERATOSIS [None]
  - RENAL CYST [None]
  - NEPHROCALCINOSIS [None]
  - COUGH [None]
  - ABDOMINAL ADHESIONS [None]
  - BREAST HYPERPLASIA [None]
  - CALCIUM DEFICIENCY [None]
  - HYPERTENSION [None]
  - FIBROMYALGIA [None]
  - ABDOMINAL DISCOMFORT [None]
  - PAIN [None]
  - SEROMA [None]
  - WRIST FRACTURE [None]
  - ABDOMINAL HERNIA [None]
  - HYPERLIPIDAEMIA [None]
  - HEPATIC CYST [None]
  - ABDOMINAL PAIN UPPER [None]
  - SENSITIVITY OF TEETH [None]
  - ARTHRALGIA [None]
  - OVARIAN DISORDER [None]
  - FATIGUE [None]
  - FALL [None]
  - DEVICE FAILURE [None]
  - VITAMIN D DEFICIENCY [None]
  - OSTEOPOROSIS [None]
  - HAEMATOMA [None]
  - DEVICE INTOLERANCE [None]
  - LIMB DEFORMITY [None]
